FAERS Safety Report 12346176 (Version 3)
Quarter: 2017Q4

REPORT INFORMATION
  Report Type: Spontaneous
  Country: US (occurrence: US)
  Receive Date: 20160509
  Receipt Date: 20171121
  Transmission Date: 20180320
  Serious: No
  Sender: FDA-Public Use
  Company Number: US-PFIZER INC-2016211173

PATIENT
  Age: 89 Year
  Sex: Female
  Weight: 75.3 kg

DRUGS (35)
  1. LYRICA [Suspect]
     Active Substance: PREGABALIN
     Indication: PAIN IN EXTREMITY
     Dosage: UNK, 2X/DAY
  2. LYRICA [Suspect]
     Active Substance: PREGABALIN
     Indication: NEUROPATHY PERIPHERAL
     Dosage: 75 MG, ONCE AT NIGHT
     Dates: start: 20171106
  3. LEVOTHYROXINE. [Concomitant]
     Active Substance: LEVOTHYROXINE
     Indication: THYROID DISORDER
     Dosage: 125 UG, UNK
  4. CINNAMON. [Concomitant]
     Active Substance: CINNAMON
     Dosage: 500 MG, UNK
  5. MILK THISTLE [Concomitant]
     Active Substance: DIETARY SUPPLEMENT\HERBALS\MILK THISTLE
     Dosage: 1000 MG, UNK
  6. ACIDOPHILUS PLUS [Concomitant]
     Dosage: UNK
  7. SIMVASTATIN. [Concomitant]
     Active Substance: SIMVASTATIN
     Dosage: 20 MG, 1X/DAY
  8. LEVOTHYROXINE. [Concomitant]
     Active Substance: LEVOTHYROXINE
     Dosage: 125 MG, UNK
  9. BOSWELLIA [Concomitant]
     Dosage: 250 MG, UNK
  10. VITAMIN B12 [Concomitant]
     Active Substance: CYANOCOBALAMIN
     Dosage: 500 MG, UNK
  11. AVIL [Concomitant]
     Active Substance: PHENIRAMINE
     Dosage: 50 MG, UNK
  12. LYRICA [Suspect]
     Active Substance: PREGABALIN
     Indication: PARAESTHESIA
  13. PROBIOTIC ACIDOPHILUS [Concomitant]
     Active Substance: LACTOBACILLUS ACIDOPHILUS
     Dosage: UNK
  14. LYRICA [Suspect]
     Active Substance: PREGABALIN
     Indication: LIMB DISCOMFORT
     Dosage: 50 MG, 1X/DAY
     Route: 048
     Dates: start: 2016, end: 201610
  15. OMEPRAZOLE. [Concomitant]
     Active Substance: OMEPRAZOLE
     Dosage: 20 MG, UNK
  16. CEPHALEXIN. [Concomitant]
     Active Substance: CEPHALEXIN
     Dosage: 250 MG, UNK
  17. DIAZEPAM. [Concomitant]
     Active Substance: DIAZEPAM
     Dosage: 5 MG, 1X/DAY
  18. ZINC. [Concomitant]
     Active Substance: ZINC
     Dosage: 50 MG, UNK
  19. VITAMIN D [Concomitant]
     Active Substance: CHOLECALCIFEROL
     Dosage: 1000 IU, UNK
  20. BIOTIN [Concomitant]
     Active Substance: BIOTIN
     Dosage: 1000 MG, UNK
  21. CLONAZEPAM. [Concomitant]
     Active Substance: CLONAZEPAM
     Dosage: 0.5 MG, UNK
  22. VITAMINS /00067501/ [Concomitant]
     Active Substance: VITAMINS
     Dosage: UNK
  23. CALCIUM [Concomitant]
     Active Substance: CALCIUM
     Dosage: 1200 MG, UNK
  24. OMEPRAZOLE. [Concomitant]
     Active Substance: OMEPRAZOLE
     Dosage: UNK (IT^S A LOW DOSE)
  25. SOY ISOFLAVONE [Concomitant]
     Active Substance: ISOFLAVONES SOY
     Dosage: UNK
  26. ASPIRIN. [Concomitant]
     Active Substance: ASPIRIN
     Dosage: 81 MG, UNK
  27. DIAZEPAM. [Concomitant]
     Active Substance: DIAZEPAM
     Dosage: 0.5 MG, UNK
  28. VITAMIN C [Concomitant]
     Active Substance: ASCORBIC ACID
     Dosage: 500 MG, UNK
  29. GABAPENTIN. [Concomitant]
     Active Substance: GABAPENTIN
     Dosage: 300 MG, UNK
  30. VITAMIN D3 [Concomitant]
     Active Substance: CHOLECALCIFEROL
     Dosage: 100 MG, UNK
  31. LYRICA [Suspect]
     Active Substance: PREGABALIN
     Indication: HYPOAESTHESIA
  32. METFORMIN [Concomitant]
     Active Substance: METFORMIN HYDROCHLORIDE
     Dosage: 500 MG, UNK
  33. HYALURONIC ACID [Concomitant]
     Active Substance: HYALURONIC ACID
     Dosage: 100 MG, UNK
  34. ESTER-C [Concomitant]
     Active Substance: CALCIUM\VITAMINS
     Dosage: 500 MG, UNK
  35. EVENING PRIMROSE OIL [Concomitant]
     Active Substance: EVENING PRIMROSE OIL
     Dosage: UNK

REACTIONS (9)
  - Burning sensation [Unknown]
  - Asthenia [Unknown]
  - Fall [Unknown]
  - Hypertension [Recovered/Resolved]
  - Body height increased [Unknown]
  - Limb discomfort [Unknown]
  - Muscle spasms [Unknown]
  - Drug ineffective [Unknown]
  - Intentional product misuse [Unknown]

NARRATIVE: CASE EVENT DATE: 20171111
